FAERS Safety Report 19179111 (Version 1)
Quarter: 2021Q2

REPORT INFORMATION
  Report Type: Spontaneous
  Country: US (occurrence: US)
  Receive Date: 20210426
  Receipt Date: 20210426
  Transmission Date: 20210717
  Serious: Yes (Other)
  Sender: FDA-Public Use
  Company Number: US-STRIDES ARCOLAB LIMITED-2021SP002401

PATIENT
  Age: 5 Decade
  Sex: Male

DRUGS (7)
  1. ITRACONAZOLE. [Suspect]
     Active Substance: ITRACONAZOLE
     Indication: TRICHOPHYTOSIS
     Dosage: 200 MILLIGRAM, EVERY 12 HRS
     Route: 048
  2. TERBINAFINE. [Concomitant]
     Active Substance: TERBINAFINE
     Indication: TRICHOPHYTOSIS
  3. CICLOPIROX. [Concomitant]
     Active Substance: CICLOPIROX
     Indication: BODY TINEA
     Dosage: UNK
     Route: 061
  4. CICLOPIROX. [Concomitant]
     Active Substance: CICLOPIROX
     Indication: TRICHOPHYTOSIS
  5. ITRACONAZOLE. [Suspect]
     Active Substance: ITRACONAZOLE
     Dosage: 200MG DAILY
     Route: 048
  6. TERBINAFINE. [Concomitant]
     Active Substance: TERBINAFINE
     Indication: BODY TINEA
     Dosage: UNK
     Route: 065
  7. ITRACONAZOLE. [Suspect]
     Active Substance: ITRACONAZOLE
     Indication: BODY TINEA
     Dosage: 200 MILLIGRAM, EVERY 12 HRS FOR 1 WEEK EVERY MONTH FOR 4 MONTHS
     Route: 048

REACTIONS (1)
  - Drug resistance [Unknown]
